FAERS Safety Report 7002540-8 (Version None)
Quarter: 2010Q3

REPORT INFORMATION
  Report Type: 
  Country: None (occurrence: None)
  Receive Date: 20100920
  Receipt Date: 20091201
  Transmission Date: 20110219
  Serious: No
  Sender: FDA-Public Use
  Company Number: US-ASTRAZENECA-2009SE29768

PATIENT
  Age: 43 Year
  Sex: Male
  Weight: 81.6 kg

DRUGS (2)
  1. SEROQUEL [Suspect]
     Indication: BIPOLAR DISORDER
     Route: 048
     Dates: start: 20070101
  2. DEPAKOTE [Concomitant]

REACTIONS (4)
  - MEMORY IMPAIRMENT [None]
  - SLEEP DISORDER DUE TO A GENERAL MEDICAL CONDITION [None]
  - SOMNAMBULISM [None]
  - SOMNOLENCE [None]
